APPROVED DRUG PRODUCT: METHENAMINE HIPPURATE
Active Ingredient: METHENAMINE HIPPURATE
Strength: 1GM
Dosage Form/Route: TABLET;ORAL
Application: A219661 | Product #001 | TE Code: AB
Applicant: ZYDUS LIFESCIENCES LTD
Approved: Mar 10, 2025 | RLD: No | RS: No | Type: RX